FAERS Safety Report 9324231 (Version 1)
Quarter: 2013Q2

REPORT INFORMATION
  Report Type: Spontaneous
  Country: US (occurrence: None)
  Receive Date: 20130529
  Receipt Date: 20130529
  Transmission Date: 20140414
  Serious: Yes (Other)
  Sender: FDA-Public Use
  Company Number: KAD201305-000605

PATIENT
  Age: 53 Year
  Sex: Female

DRUGS (5)
  1. ANASTROZOLE [Suspect]
     Indication: BREAST CANCER
  2. NITROFURANTOIN [Concomitant]
  3. ASPIRIN (ASPIRIN) [Concomitant]
  4. VITAMIN D (VITAMIN D) [Concomitant]
  5. CALCIUM CITRATE (CALCIUM CITRATE) [Concomitant]

REACTIONS (6)
  - Lichen sclerosus [None]
  - Vulvovaginal dryness [None]
  - Sexual dysfunction [None]
  - Atrophic vulvovaginitis [None]
  - Blood oestrogen decreased [None]
  - Vulvovaginal discomfort [None]
